FAERS Safety Report 24609185 (Version 1)
Quarter: 2024Q4

REPORT INFORMATION
  Report Type: Spontaneous
  Country: US (occurrence: US)
  Receive Date: 20241112
  Receipt Date: 20241112
  Transmission Date: 20250115
  Serious: Yes (Other)
  Sender: PFIZER
  Company Number: US-PFIZER INC-PV202400144491

PATIENT
  Sex: Female

DRUGS (1)
  1. MAGNESIUM SULFATE [Suspect]
     Active Substance: MAGNESIUM SULFATE
     Indication: Pre-eclampsia
     Dosage: 6 GRAMS FOLLOWED BY 2 G/HR AS A CONTINUOUS INFUSION

REACTIONS (3)
  - Hyperkalaemia [Recovering/Resolving]
  - Hypermagnesaemia [Recovering/Resolving]
  - Maternal exposure during pregnancy [Unknown]
